FAERS Safety Report 5440604-0 (Version None)
Quarter: 2007Q3

REPORT INFORMATION
  Report Type: 
  Country: None (occurrence: None)
  Receive Date: 20070831
  Receipt Date: 20070830
  Transmission Date: 20080115
  Serious: Yes (Death)
  Sender: FDA-Public Use
  Company Number: AU-ABBOTT-07P-008-0415594-01

PATIENT
  Sex: Male

DRUGS (6)
  1. HUMIRA [Suspect]
     Indication: RHEUMATOID ARTHRITIS
     Route: 058
     Dates: start: 20050315, end: 20070802
  2. METHOTREXATE [Concomitant]
     Indication: RHEUMATOID ARTHRITIS
     Dates: start: 20001101, end: 20070809
  3. SULFASALAZINE [Concomitant]
     Indication: RHEUMATOID ARTHRITIS
     Dates: end: 20070809
  4. PREDNISOLONE [Concomitant]
     Indication: RHEUMATOID ARTHRITIS
  5. COMMERCIAL HUMIRA [Concomitant]
     Indication: DRUG USE FOR UNKNOWN INDICATION
     Route: 058
     Dates: start: 20040729
  6. COMMERCIAL HUMIRA [Concomitant]
     Indication: RHEUMATOID ARTHRITIS

REACTIONS (2)
  - DEATH [None]
  - ISCHAEMIC CARDIOMYOPATHY [None]
